FAERS Safety Report 9217682 (Version 1)
Quarter: 2013Q2

REPORT INFORMATION
  Report Type: Spontaneous
  Country: GB (occurrence: GB)
  Receive Date: 20130408
  Receipt Date: 20130408
  Transmission Date: 20140414
  Serious: Yes (Life-Threatening)
  Sender: FDA-Public Use
  Company Number: GB-ASTRAZENECA-2013SE21437

PATIENT
  Age: 85 Year
  Sex: Female

DRUGS (4)
  1. FASLODEX [Suspect]
     Indication: BREAST CANCER
     Route: 030
     Dates: start: 20121113
  2. BENDROFLUMETHIAZIDE [Concomitant]
  3. IBUPROFEN [Concomitant]
  4. OMEPRAZOLE [Concomitant]

REACTIONS (1)
  - Deep vein thrombosis [Unknown]
